FAERS Safety Report 4867744-9 (Version None)
Quarter: 2005Q4

REPORT INFORMATION
  Report Type: 
  Country: None (occurrence: None)
  Receive Date: 20051223
  Receipt Date: 20051223
  Transmission Date: 20060501
  Serious: Yes (Other)
  Sender: FDA-Public Use
  Company Number: None

PATIENT
  Age: 55 Year
  Sex: Female

DRUGS (1)
  1. NIFEDIPINE ER (XL) TABS B/30; 30MG [Suspect]
     Indication: CARDIAC DISORDER
     Dosage: TAKE ONE CAP DAILY

REACTIONS (2)
  - ARRHYTHMIA [None]
  - DRUG INEFFECTIVE [None]
